FAERS Safety Report 4502459-8 (Version None)
Quarter: 2004Q4

REPORT INFORMATION
  Report Type: 
  Country: None (occurrence: None)
  Receive Date: 20041112
  Receipt Date: 20041027
  Transmission Date: 20050328
  Serious: Yes (Death, Hospitalization)
  Sender: FDA-Public Use
  Company Number: 105316ISR

PATIENT
  Age: 65 Year
  Sex: Female

DRUGS (2)
  1. CISPLATIN [Suspect]
     Indication: LUNG CANCER METASTATIC
     Dosage: 100 MILLIGRAM, INTRAVENOUS NOS
     Route: 042
     Dates: start: 20041004, end: 20041004
  2. GEMCITABINE HYDROCHLORIDE [Suspect]
     Indication: LUNG CANCER METASTATIC
     Dosage: 1800 MILLIGRAM   , INTRAVENOUS NOS
     Route: 042
     Dates: start: 20041004, end: 20041011

REACTIONS (7)
  - COMA URAEMIC [None]
  - CONVULSION [None]
  - KETOACIDOSIS [None]
  - LOSS OF CONSCIOUSNESS [None]
  - MALAISE [None]
  - RENAL FAILURE ACUTE [None]
  - URAEMIC ENCEPHALOPATHY [None]
